FAERS Safety Report 12173655 (Version 1)
Quarter: 2016Q1

REPORT INFORMATION
  Report Type: Spontaneous
  Country: US (occurrence: None)
  Receive Date: 20160311
  Receipt Date: 20160311
  Transmission Date: 20160526
  Serious: Yes (Life-Threatening, Hospitalization)
  Sender: FDA-Public Use
  Company Number: None

PATIENT
  Age: 32 Year
  Sex: Female
  Weight: 60.33 kg

DRUGS (4)
  1. VITAMIN D3 WITH K2 [Concomitant]
  2. REMICADE [Suspect]
     Active Substance: INFLIXIMAB
     Indication: CROHN^S DISEASE
     Dates: start: 20150716, end: 20160301
  3. MULTIVITAMIN [Concomitant]
     Active Substance: VITAMINS
  4. LIALDA [Concomitant]
     Active Substance: MESALAMINE

REACTIONS (8)
  - Chest discomfort [None]
  - Head discomfort [None]
  - Nausea [None]
  - Loss of consciousness [None]
  - Flushing [None]
  - Dyspnoea [None]
  - Dizziness [None]
  - Palpitations [None]

NARRATIVE: CASE EVENT DATE: 20160301
